FAERS Safety Report 4283355-0 (Version None)
Quarter: 2004Q1

REPORT INFORMATION
  Report Type: 
  Country: None (occurrence: None)
  Receive Date: 20040129
  Receipt Date: 20040116
  Transmission Date: 20041129
  Serious: Yes (Other)
  Sender: FDA-Public Use
  Company Number: 2004003693

PATIENT
  Age: 6 Year
  Sex: Female

DRUGS (4)
  1. ZITHROMAX [Suspect]
     Indication: MYCOPLASMA INFECTION
     Dosage: 250 MG, ORAL
     Route: 048
     Dates: start: 20030901
  2. EPRAZINONE HYDROCHLORIDE (EPRAZINONE HYDROCHLORIDE) [Suspect]
     Indication: ILL-DEFINED DISORDER
     Dosage: ORAL
     Route: 048
     Dates: start: 20030901
  3. THEOPHYLLINE [Suspect]
     Indication: ASTHMA
     Dosage: ORAL
     Route: 048
     Dates: start: 20030901
  4. MEQUITAZINE (MEQUITAZINE) [Suspect]
     Indication: ILL-DEFINED DISORDER
     Dosage: 3 MG, ORAL
     Route: 048
     Dates: start: 20030901

REACTIONS (2)
  - FEBRILE CONVULSION [None]
  - LOSS OF CONSCIOUSNESS [None]
